FAERS Safety Report 8777088 (Version 5)
Quarter: 2012Q4

REPORT INFORMATION
  Report Type: 
  Country: AU (occurrence: AU)
  Receive Date: 20120911
  Receipt Date: 20121123
  Transmission Date: 20130627
  Serious: Yes (Hospitalization)
  Sender: FDA-Public Use
  Company Number: PHHY2012AU078393

PATIENT
  Age: 29 Year
  Sex: Male

DRUGS (7)
  1. CLOZARIL [Suspect]
     Dosage: 325 mg, UNK
     Route: 048
     Dates: start: 19980918, end: 20120912
  2. CLOZARIL [Suspect]
     Route: 048
  3. METFORMIN [Concomitant]
     Dosage: 850 mg, TID
     Route: 048
  4. FENOFIBRATE [Concomitant]
     Dosage: 145 mg, (At night)
     Route: 048
     Dates: start: 20120913
  5. GLICLAZIDE [Concomitant]
     Dosage: 90 mg,(At morning)
     Route: 048
     Dates: start: 20120913
  6. ATORVASTATIN [Concomitant]
     Dosage: 80 mg, (At morning)
     Route: 048
     Dates: start: 20120913
  7. PAROXETINE [Concomitant]
     Dosage: 10 mg,( At morning)
     Route: 048
     Dates: start: 20120913

REACTIONS (6)
  - Schizophrenia [Recovering/Resolving]
  - Delusion [Recovering/Resolving]
  - Irritability [Recovering/Resolving]
  - Blood glucose increased [Unknown]
  - Agitation [Recovering/Resolving]
  - Psychotic disorder [Unknown]
